FAERS Safety Report 11966237 (Version 3)
Quarter: 2016Q1

REPORT INFORMATION
  Report Type: Spontaneous
  Country: BR (occurrence: BR)
  Receive Date: 20160127
  Receipt Date: 20160329
  Transmission Date: 20160526
  Serious: Yes (Hospitalization, Other)
  Sender: FDA-Public Use
  Company Number: BR-JNJFOC-20160120004

PATIENT
  Sex: Female

DRUGS (1)
  1. SIMPONI [Suspect]
     Active Substance: GOLIMUMAB
     Indication: RHEUMATOID ARTHRITIS
     Route: 058
     Dates: start: 20150218

REACTIONS (5)
  - Localised infection [Unknown]
  - Skin lesion [Unknown]
  - Heart rate abnormal [Unknown]
  - Skin ulcer [Unknown]
  - White blood cell disorder [Unknown]
